FAERS Safety Report 15490498 (Version 18)
Quarter: 2022Q3

REPORT INFORMATION
  Report Type: Spontaneous
  Country: GB (occurrence: GB)
  Receive Date: 20181011
  Receipt Date: 20220913
  Transmission Date: 20221026
  Serious: Yes (Death, Life-Threatening, Hospitalization, Disabling, Other)
  Sender: FDA-Public Use
  Company Number: PHHY2018GB120635

PATIENT
  Age: 76 Year
  Sex: Male
  Weight: 69 kg

DRUGS (112)
  1. CLARITHROMYCIN [Interacting]
     Active Substance: CLARITHROMYCIN
     Indication: Pneumonia
     Dosage: 500 MG, BID
     Route: 042
     Dates: start: 20180127, end: 20180131
  2. CLARITHROMYCIN [Interacting]
     Active Substance: CLARITHROMYCIN
     Indication: Mediastinitis
     Dosage: 1000 MG, QD, (500MG BID)
     Route: 042
     Dates: start: 20180127, end: 20180131
  3. CLARITHROMYCIN [Interacting]
     Active Substance: CLARITHROMYCIN
     Indication: Lower respiratory tract infection
     Dosage: 1000 MG, QD
     Route: 042
  4. CLARITHROMYCIN [Interacting]
     Active Substance: CLARITHROMYCIN
     Dosage: 9000 MG, QD
     Route: 065
  5. CLARITHROMYCIN [Interacting]
     Active Substance: CLARITHROMYCIN
     Dosage: 500 MG, QOD
     Route: 042
  6. CLARITHROMYCIN [Interacting]
     Active Substance: CLARITHROMYCIN
     Dosage: 900 MG
     Route: 065
  7. BISOPROLOL [Suspect]
     Active Substance: BISOPROLOL
     Indication: Product used for unknown indication
     Dosage: UNK
     Route: 065
  8. CEFUROXIME [Suspect]
     Active Substance: CEFUROXIME
     Indication: Product used for unknown indication
     Dosage: UNK
     Route: 065
     Dates: start: 20180131
  9. CEFUROXIME [Suspect]
     Active Substance: CEFUROXIME
     Dosage: UNK
     Route: 065
  10. CEFUROXIME [Suspect]
     Active Substance: CEFUROXIME
     Dosage: UNK
     Route: 065
  11. CEFUROXIME [Suspect]
     Active Substance: CEFUROXIME
     Dosage: UNK
     Route: 065
  12. CEFUROXIME [Suspect]
     Active Substance: CEFUROXIME
     Dosage: UNK
     Route: 065
  13. CEFUROXIME [Suspect]
     Active Substance: CEFUROXIME
     Dosage: UNK
     Route: 065
  14. TACROLIMUS [Interacting]
     Active Substance: TACROLIMUS
     Indication: Prophylaxis against transplant rejection
     Dosage: 3 MG, QD (1.5 MG, BID)
     Route: 048
     Dates: start: 20180127, end: 20180131
  15. TACROLIMUS [Interacting]
     Active Substance: TACROLIMUS
     Indication: Renal transplant
     Dosage: 30 MG, QD, (15 MG, BID)
     Route: 048
  16. TACROLIMUS [Interacting]
     Active Substance: TACROLIMUS
     Dosage: 27 MG
     Route: 065
  17. TACROLIMUS [Interacting]
     Active Substance: TACROLIMUS
     Dosage: 12 MG
     Route: 065
  18. TACROLIMUS [Interacting]
     Active Substance: TACROLIMUS
     Dosage: 1.5 MG, BID
     Route: 048
     Dates: start: 20180127, end: 20180130
  19. TACROLIMUS [Interacting]
     Active Substance: TACROLIMUS
     Dosage: 15 MG, BID
     Route: 048
  20. TACROLIMUS [Interacting]
     Active Substance: TACROLIMUS
     Dosage: 1.5 MG
     Route: 048
     Dates: start: 20180127
  21. TACROLIMUS [Interacting]
     Active Substance: TACROLIMUS
     Dosage: 4 MG, QD, (2 MG BID)
     Route: 065
  22. TACROLIMUS [Interacting]
     Active Substance: TACROLIMUS
     Dosage: 2 MG, QD, (2 MG BID)
     Route: 065
  23. TACROLIMUS [Suspect]
     Active Substance: TACROLIMUS
     Indication: Renal transplant
     Dosage: 3 MG, QD, (1.5 MG BID)
     Route: 048
     Dates: start: 20100127, end: 20180130
  24. TACROLIMUS [Suspect]
     Active Substance: TACROLIMUS
     Indication: Prophylaxis against transplant rejection
     Dosage: 1.5 MG, BID
     Route: 048
     Dates: start: 20180127
  25. TACROLIMUS [Suspect]
     Active Substance: TACROLIMUS
     Indication: Renal transplant
     Dosage: 2 MG, BID
     Route: 048
     Dates: start: 20180127
  26. TACROLIMUS [Suspect]
     Active Substance: TACROLIMUS
     Dosage: 4 MG, QD, (2 MG BID)
     Route: 065
     Dates: start: 20180128
  27. TACROLIMUS [Suspect]
     Active Substance: TACROLIMUS
     Dosage: 15 MG, BID
     Route: 065
  28. TACROLIMUS [Suspect]
     Active Substance: TACROLIMUS
     Dosage: 30 MG, QD
     Route: 048
  29. TACROLIMUS [Suspect]
     Active Substance: TACROLIMUS
     Dosage: 3 MG, QD, (1.5 MG BID)
     Route: 048
     Dates: start: 20100127, end: 20180130
  30. TACROLIMUS [Suspect]
     Active Substance: TACROLIMUS
     Dosage: 3 MG, QD, (1.5 MG BID)
     Route: 048
     Dates: start: 20100127, end: 20180130
  31. TACROLIMUS [Suspect]
     Active Substance: TACROLIMUS
     Dosage: 4 MG, QD
     Route: 065
  32. TACROLIMUS [Suspect]
     Active Substance: TACROLIMUS
     Dosage: 30 MG, QD
     Route: 048
  33. TACROLIMUS [Suspect]
     Active Substance: TACROLIMUS
     Dosage: 30 MG, QD, (15 MG BID)
     Route: 048
     Dates: start: 20180127
  34. TACROLIMUS [Suspect]
     Active Substance: TACROLIMUS
     Dosage: 4 MG, QD, (2 MG BID)
     Route: 065
     Dates: start: 20180128
  35. TACROLIMUS [Suspect]
     Active Substance: TACROLIMUS
     Dosage: 4 MG, QD
     Route: 065
  36. TACROLIMUS [Suspect]
     Active Substance: TACROLIMUS
     Dosage: 2 MG, QD, ((TACROLIMUS 2 MG BID)
     Route: 065
  37. TACROLIMUS [Suspect]
     Active Substance: TACROLIMUS
     Dosage: 4 MG, QD
     Route: 065
  38. TACROLIMUS [Suspect]
     Active Substance: TACROLIMUS
     Dosage: 4 MG, QD
     Route: 065
     Dates: start: 20180128
  39. TACROLIMUS [Suspect]
     Active Substance: TACROLIMUS
     Dosage: 30 MG, QD, (15 MG BID)
     Route: 048
  40. PENICILLIN [Suspect]
     Active Substance: PENICILLIN
     Indication: Product used for unknown indication
     Dosage: UNK
     Route: 065
  41. ENVARSUS XR [Interacting]
     Active Substance: TACROLIMUS
     Indication: Prophylaxis against transplant rejection
     Dosage: UNK
     Route: 065
  42. ENVARSUS XR [Interacting]
     Active Substance: TACROLIMUS
     Indication: Renal transplant
     Dosage: 3 MG, QD (1.5 MG, BID)
     Route: 048
     Dates: start: 20180127, end: 20180131
  43. ENVARSUS XR [Interacting]
     Active Substance: TACROLIMUS
     Dosage: UNK
     Route: 065
  44. ENVARSUS XR [Interacting]
     Active Substance: TACROLIMUS
     Dosage: UNK
     Route: 065
  45. ENVARSUS XR [Interacting]
     Active Substance: TACROLIMUS
     Dosage: UNK
     Route: 065
  46. ENVARSUS XR [Interacting]
     Active Substance: TACROLIMUS
     Dosage: UNK
     Route: 065
  47. ENVARSUS XR [Interacting]
     Active Substance: TACROLIMUS
     Dosage: UNK
     Route: 065
  48. ENVARSUS XR [Interacting]
     Active Substance: TACROLIMUS
     Dosage: 27 MG, (EVERY 5 DAYS)
     Route: 065
  49. ENVARSUS XR [Interacting]
     Active Substance: TACROLIMUS
     Dosage: 12 MG, QD
     Route: 065
  50. OMEPRAZOLE [Suspect]
     Active Substance: OMEPRAZOLE
     Indication: Duodenal ulcer
     Dosage: 20 MG, QD (CHEMO IBERICA)
     Route: 048
  51. OMEPRAZOLE [Suspect]
     Active Substance: OMEPRAZOLE
     Dosage: 20 MG, QD (MORNING)
     Route: 048
  52. OMEPRAZOLE [Suspect]
     Active Substance: OMEPRAZOLE
     Dosage: 20 MG, QMO
     Route: 048
  53. OMEPRAZOLE [Suspect]
     Active Substance: OMEPRAZOLE
     Dosage: 20 MG, QD
     Route: 048
  54. NITROGLYCERIN [Suspect]
     Active Substance: NITROGLYCERIN
     Indication: Product used for unknown indication
     Dosage: UNK
     Route: 065
  55. NITROGLYCERIN [Suspect]
     Active Substance: NITROGLYCERIN
     Dosage: UNK
     Route: 065
  56. NITROGLYCERIN [Suspect]
     Active Substance: NITROGLYCERIN
     Dosage: UNK
     Route: 065
  57. NITROGLYCERIN [Suspect]
     Active Substance: NITROGLYCERIN
     Dosage: UNK
     Route: 065
  58. NITROGLYCERIN [Suspect]
     Active Substance: NITROGLYCERIN
     Dosage: UNK
     Route: 065
  59. DOXYCYCLINE [Suspect]
     Active Substance: DOXYCYCLINE
     Indication: Product used for unknown indication
     Dosage: 1 DOSAGE FORM
     Route: 065
  60. UNSPECIFIED INGREDIENT [Suspect]
     Active Substance: UNSPECIFIED INGREDIENT
     Indication: Product used for unknown indication
     Dosage: UNK
     Route: 065
  61. HYDROCORTISONE [Suspect]
     Active Substance: HYDROCORTISONE
     Indication: Product used for unknown indication
     Dosage: 50 MG, TID
     Route: 042
  62. HYDROCORTISONE [Suspect]
     Active Substance: HYDROCORTISONE
     Dosage: 150 MG, QD
     Route: 042
     Dates: start: 20180201
  63. HYDROCORTISONE [Suspect]
     Active Substance: HYDROCORTISONE
     Dosage: 150 MG, TID
     Route: 042
     Dates: start: 20180201
  64. HYDROCORTISONE [Suspect]
     Active Substance: HYDROCORTISONE
     Dosage: 50 MG, TID
     Route: 042
     Dates: start: 20180201
  65. NITROGLYCERIN [Suspect]
     Active Substance: NITROGLYCERIN
     Indication: Product used for unknown indication
     Dosage: UNK
     Route: 065
  66. NITROGLYCERIN [Suspect]
     Active Substance: NITROGLYCERIN
     Dosage: UNK
     Route: 065
  67. NITROGLYCERIN [Suspect]
     Active Substance: NITROGLYCERIN
     Dosage: UNK
     Route: 065
  68. NITROGLYCERIN [Suspect]
     Active Substance: NITROGLYCERIN
     Dosage: UNK
     Route: 065
  69. NITROGLYCERIN [Suspect]
     Active Substance: NITROGLYCERIN
     Dosage: UNK
     Route: 065
  70. NITROGLYCERIN [Suspect]
     Active Substance: NITROGLYCERIN
     Dosage: UNK
     Route: 065
  71. DEXTROSE [Suspect]
     Active Substance: DEXTROSE
     Indication: Product used for unknown indication
     Dosage: UNK
     Route: 065
     Dates: start: 20180130
  72. ALFACALCIDOL [Concomitant]
     Active Substance: ALFACALCIDOL
     Indication: Product used for unknown indication
     Dosage: 500 NANOGRAM, QD
     Route: 048
  73. ALLOPURINOL SODIUM [Concomitant]
     Active Substance: ALLOPURINOL SODIUM
     Indication: Product used for unknown indication
     Dosage: 100 MG, QD
     Route: 048
  74. BETAHISTINE [Concomitant]
     Active Substance: BETAHISTINE
     Indication: Product used for unknown indication
     Dosage: 8 MG, QMO
     Route: 048
  75. BETAHISTINE [Concomitant]
     Active Substance: BETAHISTINE
     Dosage: 8 MG, QD, MORNING
     Route: 048
  76. CHOLECALCIFEROL [Concomitant]
     Active Substance: CHOLECALCIFEROL
     Indication: Product used for unknown indication
     Dosage: 20 NG, QD
     Route: 048
  77. CHOLECALCIFEROL [Concomitant]
     Active Substance: CHOLECALCIFEROL
     Dosage: 20 NG, QMO
     Route: 048
  78. EPLERENONE [Concomitant]
     Active Substance: EPLERENONE
     Indication: Product used for unknown indication
     Dosage: 25 MG, QD, MORNING
     Route: 048
     Dates: start: 20180130
  79. EPLERENONE [Concomitant]
     Active Substance: EPLERENONE
     Dosage: 25 MG, QMO
     Route: 048
     Dates: end: 20180130
  80. EPLERENONE [Concomitant]
     Active Substance: EPLERENONE
     Dosage: 25 MG, QD
     Route: 065
     Dates: end: 20180130
  81. FUROSEMIDE [Concomitant]
     Active Substance: FUROSEMIDE
     Indication: Product used for unknown indication
     Dosage: 80 MG, QD
     Route: 048
     Dates: end: 20180130
  82. FUROSEMIDE [Concomitant]
     Active Substance: FUROSEMIDE
     Dosage: 40 MG, UNK 12 PM
     Route: 048
  83. FUROSEMIDE [Concomitant]
     Active Substance: FUROSEMIDE
     Dosage: 120 MG, QD, (80MG MORNING, 40MG 12PM)
     Route: 048
  84. FUROSEMIDE [Concomitant]
     Active Substance: FUROSEMIDE
     Dosage: 80 MG, QD
     Route: 048
     Dates: end: 20180130
  85. FUROSEMIDE [Concomitant]
     Active Substance: FUROSEMIDE
     Dosage: 80 MG, QMO
     Route: 048
     Dates: start: 20180130
  86. GLICLAZIDE [Concomitant]
     Active Substance: GLICLAZIDE
     Indication: Product used for unknown indication
     Dosage: 40 MG, QMO
     Route: 048
  87. GLICLAZIDE [Concomitant]
     Active Substance: GLICLAZIDE
     Dosage: 40 MG, QD
     Route: 048
  88. GLICLAZIDE [Concomitant]
     Active Substance: GLICLAZIDE
     Dosage: 40 MG, QD, MORNING
     Route: 048
  89. PREDNISOLONE [Concomitant]
     Active Substance: PREDNISOLONE
     Indication: Product used for unknown indication
     Dosage: 5 MG, QD, AM
     Route: 048
  90. PREDNISOLONE [Concomitant]
     Active Substance: PREDNISOLONE
     Dosage: 5 MG, QD
     Route: 048
  91. PREDNISOLONE [Concomitant]
     Active Substance: PREDNISOLONE
     Dosage: 5 MG, QMO
     Route: 048
     Dates: start: 20180127
  92. PREDNISOLONE [Concomitant]
     Active Substance: PREDNISOLONE
     Dosage: INCREASE PREDNISOLONE TO 10 MG FOR 5 DAYS;
     Route: 065
     Dates: start: 20180127
  93. PREDNISOLONE [Concomitant]
     Active Substance: PREDNISOLONE
     Dosage: 10 MG
     Route: 065
  94. SENNA [Concomitant]
     Active Substance: SENNA LEAF\SENNOSIDES\SENNOSIDES A AND B
     Indication: Product used for unknown indication
     Dosage: 5 MG, QD
     Route: 048
  95. SENNA [Concomitant]
     Active Substance: SENNA LEAF\SENNOSIDES\SENNOSIDES A AND B
     Dosage: 15 MG, QD, PM
     Route: 048
  96. SENNA [Concomitant]
     Active Substance: SENNA LEAF\SENNOSIDES\SENNOSIDES A AND B
     Dosage: 15 MG, QD, (ON PO O/A)
     Route: 048
  97. ALBUTEROL [Concomitant]
     Active Substance: ALBUTEROL
     Indication: Product used for unknown indication
     Dosage: UNK
     Route: 065
  98. GLUCOGEL [Concomitant]
     Indication: Product used for unknown indication
     Dosage: UNK
     Route: 065
  99. GLUCOGEL [Concomitant]
     Dosage: UNK
     Route: 065
     Dates: start: 20180130
  100. GLUCOGEL [Concomitant]
     Dosage: UNK
     Route: 065
  101. GLUCOGEL [Concomitant]
     Dosage: UNK
     Route: 065
  102. GLUCOGEL [Concomitant]
     Dosage: UNK
     Route: 065
  103. GLUCOGEL [Concomitant]
     Dosage: UNK
     Route: 065
  104. GLUCOGEL [Concomitant]
     Dosage: UNK
     Route: 065
  105. GLUCOGEL [Concomitant]
     Dosage: UNK
     Route: 065
  106. GLUCAGON [Concomitant]
     Active Substance: GLUCAGON
     Indication: Product used for unknown indication
     Dosage: UNK
     Route: 030
  107. GLUCAGON [Concomitant]
     Active Substance: GLUCAGON
     Dosage: UNK
     Route: 030
     Dates: start: 20180130
  108. DEXTROSE [Concomitant]
     Active Substance: DEXTROSE
     Indication: Product used for unknown indication
     Dosage: UNK
     Route: 042
     Dates: end: 20180130
  109. DEXTROSE [Concomitant]
     Active Substance: DEXTROSE
     Dosage: UNK
     Route: 065
     Dates: start: 20180130
  110. CHOLECALCIFEROL [Concomitant]
     Active Substance: CHOLECALCIFEROL
     Indication: Product used for unknown indication
     Dosage: 20 NG, QMO
     Route: 048
  111. CHOLECALCIFEROL [Concomitant]
     Active Substance: CHOLECALCIFEROL
     Dosage: 20 NG, QD, MORNING
     Route: 048
  112. CALCIUM CARBONATE [Concomitant]
     Active Substance: CALCIUM CARBONATE
     Indication: Product used for unknown indication
     Dosage: UNK
     Route: 065

REACTIONS (34)
  - Myocardial ischaemia [Fatal]
  - Cardiac failure congestive [Fatal]
  - Acute kidney injury [Fatal]
  - Inflammatory marker increased [Fatal]
  - Pyrexia [Fatal]
  - Rash [Fatal]
  - Immunosuppressant drug level increased [Fatal]
  - Sepsis [Fatal]
  - Pneumonia [Fatal]
  - Oesophageal carcinoma [Fatal]
  - Hypoglycaemia [Fatal]
  - Drug interaction [Fatal]
  - Ascites [Fatal]
  - Productive cough [Fatal]
  - Dysphagia [Fatal]
  - Labelled drug-drug interaction medication error [Fatal]
  - Oesophageal perforation [Fatal]
  - Soft tissue mass [Fatal]
  - Toxicity to various agents [Not Recovered/Not Resolved]
  - Drug level increased [Not Recovered/Not Resolved]
  - Transplant failure [Fatal]
  - Rales [Fatal]
  - Haemoptysis [Unknown]
  - Renal impairment [Fatal]
  - Superinfection [Fatal]
  - Cardiomegaly [Fatal]
  - Lung consolidation [Fatal]
  - Pleural effusion [Fatal]
  - Multimorbidity [Fatal]
  - Swelling [Fatal]
  - Lower respiratory tract infection [Unknown]
  - Cough [Fatal]
  - Dyspnoea [Fatal]
  - Malaise [Fatal]

NARRATIVE: CASE EVENT DATE: 20180118
